FAERS Safety Report 6659503-1 (Version None)
Quarter: 2010Q1

REPORT INFORMATION
  Report Type: 
  Country: None (occurrence: None)
  Receive Date: 20100330
  Receipt Date: 20100325
  Transmission Date: 20100710
  Serious: Yes (Death, Other)
  Sender: FDA-Public Use
  Company Number: JP-ELI_LILLY_AND_COMPANY-JP200908005856

PATIENT
  Sex: Male
  Weight: 62 kg

DRUGS (6)
  1. GEMZAR [Suspect]
     Indication: NON-SMALL CELL LUNG CANCER STAGE IIIB
     Dosage: UNK, OTHER
     Route: 042
     Dates: start: 20090421, end: 20090702
  2. ALIMTA [Suspect]
     Indication: NON-SMALL CELL LUNG CANCER STAGE IIIB
     Dosage: 852 MG, OTHER
     Route: 042
     Dates: start: 20090803, end: 20090803
  3. CISPLATIN [Concomitant]
     Indication: NON-SMALL CELL LUNG CANCER STAGE IIIB
     Dosage: 140 MG, OTHER
     Route: 042
     Dates: start: 20090421, end: 20090421
  4. PARAPLATIN [Concomitant]
     Indication: NON-SMALL CELL LUNG CANCER STAGE IIIB
     Dosage: 400 MG, OTHER
     Route: 042
     Dates: start: 20090520, end: 20090803
  5. FOLIC ACID [Concomitant]
     Dosage: 1 G, DAILY (1/D)
     Route: 048
     Dates: start: 20090724, end: 20090819
  6. VITAMIN B-12 [Concomitant]
     Dosage: 1 MG, OTHER
     Route: 030
     Dates: start: 20090724

REACTIONS (2)
  - INTERSTITIAL LUNG DISEASE [None]
  - MALIGNANT NEOPLASM PROGRESSION [None]
